FAERS Safety Report 5204053-2 (Version None)
Quarter: 2007Q1

REPORT INFORMATION
  Report Type: 
  Country: None (occurrence: None)
  Receive Date: 20070110
  Receipt Date: 20051212
  Transmission Date: 20070707
  Serious: Yes (Other)
  Sender: FDA-Public Use
  Company Number: US-BRISTOL-MYERS SQUIBB COMPANY-13171350

PATIENT
  Age: 60 Year
  Sex: Male

DRUGS (11)
  1. ABILIFY [Suspect]
     Route: 048
     Dates: start: 20050922, end: 20051031
  2. HALDOL [Concomitant]
     Dates: start: 20050919, end: 20051202
  3. EFFEXOR XR [Concomitant]
     Dates: start: 20050921, end: 20051202
  4. AUGMENTIN '125' [Concomitant]
  5. PROZAC [Concomitant]
     Dates: start: 20050906, end: 20051202
  6. LORAZEPAM [Concomitant]
     Dates: start: 20050919, end: 20051107
  7. NALTREXONE [Concomitant]
     Dates: start: 20051019, end: 20051027
  8. COGENTIN [Concomitant]
     Dates: start: 20050909, end: 20051202
  9. BENADRYL [Concomitant]
     Dates: start: 20051019, end: 20051202
  10. MULTI-VITAMIN [Concomitant]
     Dates: start: 20050831, end: 20051202
  11. THIAMINE [Concomitant]
     Dates: start: 20050831, end: 20051202

REACTIONS (1)
  - BLOOD GLUCOSE INCREASED [None]
